FAERS Safety Report 16834039 (Version 2)
Quarter: 2020Q1

REPORT INFORMATION
  Report Type: Spontaneous
  Country: US (occurrence: US)
  Receive Date: 20190920
  Receipt Date: 20200121
  Transmission Date: 20200409
  Serious: No
  Sender: FDA-Public Use
  Company Number: US-PFIZER INC-2019406975

PATIENT
  Age: 49 Year
  Sex: Female
  Weight: 78.5 kg

DRUGS (1)
  1. PREGABALIN. [Suspect]
     Active Substance: PREGABALIN
     Indication: FIBROMYALGIA
     Dosage: UNK UNK, DAILY[50 MG IN THE MORNING; 3-50MG AT NIGHT]
     Dates: start: 201908

REACTIONS (3)
  - Therapeutic product effect incomplete [Unknown]
  - Drug ineffective [Recovered/Resolved]
  - Insomnia [Unknown]

NARRATIVE: CASE EVENT DATE: 20190815
